FAERS Safety Report 8337656 (Version 2)
Quarter: 2015Q1

REPORT INFORMATION
  Report Type: Spontaneous
  Country: US (occurrence: US)
  Receive Date: 20120116
  Receipt Date: 20150102
  Transmission Date: 20150721
  Serious: Yes (Other)
  Sender: FDA-Public Use
  Company Number: US-JNJFOC-20100806033

PATIENT
  Age: 51 Year
  Sex: Male

DRUGS (1)
  1. LEVAQUIN [Suspect]
     Active Substance: LEVOFLOXACIN
     Indication: SINUSITIS
     Route: 048
     Dates: start: 20070201, end: 20080930

REACTIONS (3)
  - Rotator cuff syndrome [Unknown]
  - Joint injury [Unknown]
  - Tendon rupture [Unknown]

NARRATIVE: CASE EVENT DATE: 200703
